FAERS Safety Report 4943353-8 (Version None)
Quarter: 2006Q1

REPORT INFORMATION
  Report Type: 
  Country: None (occurrence: None)
  Receive Date: 20060309
  Receipt Date: 20060228
  Transmission Date: 20060701
  Serious: Yes (Death)
  Sender: FDA-Public Use
  Company Number: 163-20785-06010009

PATIENT
  Age: 65 Year
  Sex: Male

DRUGS (7)
  1. THALOMID [Suspect]
     Indication: MULTIPLE MYELOMA
     Dosage: 200 MG, QHS, ORAL
     Route: 048
     Dates: start: 20031223, end: 20040917
  2. ONTAK (DENILEUKIN DIFTITOX) [Concomitant]
  3. CYCLOPHOSPHAMIDE [Concomitant]
  4. DOXORUBICIN (DOXORUBICIN) [Concomitant]
  5. VINCRISTINE [Concomitant]
  6. PREDNISONE TAB [Concomitant]
  7. FLUDARABINE PHOSPHATE [Concomitant]

REACTIONS (3)
  - CARDIAC FAILURE [None]
  - PNEUMONIA ASPIRATION [None]
  - RESPIRATORY FAILURE [None]
